FAERS Safety Report 7377311-3 (Version None)
Quarter: 2011Q1

REPORT INFORMATION
  Report Type: 
  Country: None (occurrence: None)
  Receive Date: 20110328
  Receipt Date: 20110321
  Transmission Date: 20110831
  Serious: Yes (Other)
  Sender: FDA-Public Use
  Company Number: US-JNJFOC-20100707424

PATIENT
  Sex: Male
  Weight: 124.74 kg

DRUGS (3)
  1. LEVAQUIN [Suspect]
     Indication: SINUSITIS
     Route: 048
  2. LEVAQUIN [Suspect]
     Indication: BRONCHITIS
     Route: 048
  3. LEVAQUIN [Suspect]
     Indication: PNEUMONIA
     Route: 048

REACTIONS (4)
  - ROTATOR CUFF SYNDROME [None]
  - BURSITIS [None]
  - TENDON RUPTURE [None]
  - TENOSYNOVITIS STENOSANS [None]
